FAERS Safety Report 8007146-X (Version None)
Quarter: 2011Q4

REPORT INFORMATION
  Report Type: 
  Country: None (occurrence: None)
  Receive Date: 20111227
  Receipt Date: 20111217
  Transmission Date: 20120403
  Serious: Yes (Hospitalization, Other)
  Sender: FDA-Public Use
  Company Number: BE-BAYER-2011-114903

PATIENT
  Age: 24 Year
  Sex: Female
  Weight: 64 kg

DRUGS (3)
  1. MIRENA [Suspect]
     Dosage: 20 MCG/24HR, CONT
     Route: 015
     Dates: start: 20061101, end: 20061108
  2. FRAXIPARINE [Concomitant]
     Indication: DEEP VEIN THROMBOSIS
     Dosage: UNK
     Dates: start: 20060801
  3. SINTROM [Concomitant]
     Indication: DEEP VEIN THROMBOSIS
     Dosage: UNK
     Dates: start: 20060801

REACTIONS (5)
  - PELVIC INFLAMMATORY DISEASE [None]
  - ABDOMINAL PAIN [None]
  - C-REACTIVE PROTEIN INCREASED [None]
  - DIARRHOEA [None]
  - POLLAKIURIA [None]
